FAERS Safety Report 5496901-6 (Version None)
Quarter: 2007Q4

REPORT INFORMATION
  Report Type: 
  Country: None (occurrence: None)
  Receive Date: 20071025
  Receipt Date: 20071018
  Transmission Date: 20080405
  Serious: Yes (Hospitalization)
  Sender: FDA-Public Use
  Company Number: FR-WYE-G00494207

PATIENT
  Age: 56 Year
  Sex: Female

DRUGS (3)
  1. EFFEXOR XR [Suspect]
     Route: 048
     Dates: start: 20070919
  2. RHINADVIL [Concomitant]
     Indication: RHINITIS
     Dosage: UNKNOWN
  3. LEXOMIL [Concomitant]
     Dosage: UNKNOWN
     Route: 048

REACTIONS (2)
  - COMA [None]
  - HYPONATRAEMIA [None]
